FAERS Safety Report 9270615 (Version 1)
Quarter: 2013Q2

REPORT INFORMATION
  Report Type: Report from Study
  Country: US (occurrence: US)
  Receive Date: 20130503
  Receipt Date: 20130503
  Transmission Date: 20140414
  Serious: Yes (Other)
  Sender: FDA-Public Use
  Company Number: US-ASTRAZENECA-2013SE29388

PATIENT
  Age: 79 Year
  Sex: Male

DRUGS (2)
  1. TOPROL XL [Suspect]
     Route: 048
  2. GENERIC MEDICATION [Suspect]
     Route: 065

REACTIONS (1)
  - Arrhythmia [Unknown]
